FAERS Safety Report 23342545 (Version 1)
Quarter: 2023Q4

REPORT INFORMATION
  Report Type: Report from Study
  Country: DE (occurrence: DE)
  Receive Date: 20231227
  Receipt Date: 20231227
  Transmission Date: 20240110
  Serious: Yes (Death, Other)
  Sender: FDA-Public Use
  Company Number: DE-SUN PHARMACEUTICAL INDUSTRIES LTD-2023R1-425389

PATIENT
  Age: 92 Year
  Sex: Female

DRUGS (1)
  1. CLOZAPINE [Suspect]
     Active Substance: CLOZAPINE
     Indication: Mixed dementia
     Dosage: 50 MILLIGRAM
     Route: 065

REACTIONS (3)
  - COVID-19 [Fatal]
  - Sedation [Unknown]
  - Salivary hypersecretion [Unknown]
